FAERS Safety Report 9227989 (Version 1)
Quarter: 2013Q2

REPORT INFORMATION
  Report Type: Spontaneous
  Country: US (occurrence: None)
  Receive Date: 20130411
  Receipt Date: 20130411
  Transmission Date: 20140414
  Serious: Yes (Other)
  Sender: FDA-Public Use
  Company Number: None

PATIENT
  Age: 61 Year
  Sex: Male
  Weight: 81.19 kg

DRUGS (1)
  1. AMPHETAMINE [Suspect]
     Indication: NARCOLEPSY
     Dates: start: 20130226, end: 20130326

REACTIONS (5)
  - Somnolence [None]
  - Headache [None]
  - Lethargy [None]
  - Narcolepsy [None]
  - Disease recurrence [None]
